FAERS Safety Report 21607866 (Version 2)
Quarter: 2022Q4

REPORT INFORMATION
  Report Type: Spontaneous
  Country: CA (occurrence: CA)
  Receive Date: 20221117
  Receipt Date: 20221222
  Transmission Date: 20230113
  Serious: Yes (Other)
  Sender: FDA-Public Use
  Company Number: CA-PFIZER INC-202200687690

PATIENT
  Age: 65 Year
  Sex: Female

DRUGS (2)
  1. NIVESTYM [Suspect]
     Active Substance: FILGRASTIM-AAFI
     Indication: Prophylaxis
     Dosage: 300 UG, (ILLEGIBLE FREQ), START DAY 3 POST CHEMO
     Route: 042
  2. NIVESTYM [Suspect]
     Active Substance: FILGRASTIM-AAFI
     Dosage: 300 MG
     Route: 042
     Dates: start: 20220608

REACTIONS (3)
  - Drainage [Unknown]
  - Diarrhoea [Unknown]
  - Off label use [Unknown]

NARRATIVE: CASE EVENT DATE: 20220101
